FAERS Safety Report 7083837-2 (Version None)
Quarter: 2010Q4

REPORT INFORMATION
  Report Type: 
  Country: None (occurrence: None)
  Receive Date: 20101104
  Receipt Date: 20101102
  Transmission Date: 20110411
  Serious: Yes (Hospitalization, Other)
  Sender: FDA-Public Use
  Company Number: GB-BRISTOL-MYERS SQUIBB COMPANY-15286347

PATIENT
  Age: 33 Year
  Sex: Female

DRUGS (1)
  1. DASATINIB [Suspect]
     Indication: CHRONIC MYELOID LEUKAEMIA
     Route: 048
     Dates: start: 20100301, end: 20100308

REACTIONS (8)
  - CHRONIC MYELOID LEUKAEMIA [None]
  - DIARRHOEA [None]
  - IRON DEFICIENCY ANAEMIA [None]
  - MALIGNANT NEOPLASM PROGRESSION [None]
  - MENORRHAGIA [None]
  - MIGRAINE [None]
  - NAUSEA [None]
  - VOMITING [None]
